FAERS Safety Report 16776214 (Version 1)
Quarter: 2019Q3

REPORT INFORMATION
  Report Type: Spontaneous
  Country: FR (occurrence: FR)
  Receive Date: 20190905
  Receipt Date: 20190905
  Transmission Date: 20191005
  Serious: Yes (Hospitalization)
  Sender: FDA-Public Use
  Company Number: PHHY2019FR182296

PATIENT
  Age: 18 Year
  Sex: Male

DRUGS (1)
  1. PARACETAMOL [Suspect]
     Active Substance: ACETAMINOPHEN
     Indication: SUICIDE ATTEMPT
     Dosage: UNK
     Route: 048

REACTIONS (2)
  - Toxicity to various agents [Recovered/Resolved]
  - Analgesic drug level increased [Recovered/Resolved]

NARRATIVE: CASE EVENT DATE: 20180822
